FAERS Safety Report 6725970-8 (Version None)
Quarter: 2010Q2

REPORT INFORMATION
  Report Type: 
  Country: None (occurrence: None)
  Receive Date: 20100514
  Receipt Date: 20080717
  Transmission Date: 20101027
  Serious: Yes (Other)
  Sender: FDA-Public Use
  Company Number: PHHY2008BR36964

PATIENT
  Age: 76 Year
  Sex: Female
  Weight: 80 kg

DRUGS (3)
  1. DIOVAN [Suspect]
     Indication: HYPERTENSION
     Dosage: 1 DF, BID (MORNING AND IN THE AFTERNOON)
     Route: 048
     Dates: start: 20020101
  2. NATRILIX [Concomitant]
     Indication: CARDIAC DISORDER
     Dosage: UNK
     Route: 048
     Dates: start: 19980101
  3. WARFARIN SODIUM [Concomitant]
     Indication: PROPHYLAXIS
     Dosage: 1 TABLET DAILY
     Route: 048
     Dates: start: 19980101

REACTIONS (5)
  - CARDIOMEGALY [None]
  - DEVICE MALFUNCTION [None]
  - DIZZINESS [None]
  - FATIGUE [None]
  - HYPERTHYROIDISM [None]
